FAERS Safety Report 4379731-8 (Version None)
Quarter: 2004Q2

REPORT INFORMATION
  Report Type: 
  Country: None (occurrence: None)
  Receive Date: 20040617
  Receipt Date: 20040308
  Transmission Date: 20050107
  Serious: Yes (Hospitalization)
  Sender: FDA-Public Use
  Company Number: FR-GLAXOSMITHKLINE-B0325908A

PATIENT
  Age: 70 Year
  Sex: Female
  Weight: 55 kg

DRUGS (4)
  1. VALACYCLOVIR HCL [Suspect]
     Indication: VAGINAL INFECTION
     Dosage: 500MG TWICE PER DAY
     Route: 048
     Dates: start: 20040212, end: 20040222
  2. PYOSTACINE [Suspect]
     Indication: VAGINAL INFECTION
     Dosage: 1000MG TWICE PER DAY
     Route: 048
     Dates: start: 20040213, end: 20040224
  3. ZOVIRAX [Concomitant]
     Indication: VAGINAL INFECTION
     Dosage: 5UNIT PER DAY
     Route: 061
     Dates: start: 20040212, end: 20040222
  4. MUPIROCIN [Concomitant]
     Indication: VAGINAL INFECTION
     Route: 061
     Dates: start: 20040213, end: 20040222

REACTIONS (5)
  - BRUXISM [None]
  - DROOLING [None]
  - EPILEPSY [None]
  - HEMIPLEGIA [None]
  - LOSS OF CONSCIOUSNESS [None]
